FAERS Safety Report 6593918-5 (Version None)
Quarter: 2010Q1

REPORT INFORMATION
  Report Type: 
  Country: None (occurrence: None)
  Receive Date: 20100222
  Receipt Date: 20100218
  Transmission Date: 20100710
  Serious: Yes (Death)
  Sender: FDA-Public Use
  Company Number: PHEH2010US02525

PATIENT
  Sex: Female
  Weight: 150 kg

DRUGS (5)
  1. ZOMETA [Suspect]
     Dosage: 4 MG / 5 ML, UNK
     Dates: start: 20091222, end: 20100106
  2. CATAPRES                                /USA/ [Concomitant]
     Dosage: 0.2 MG, QD
     Route: 048
     Dates: start: 20081125
  3. LEXAPRO [Concomitant]
     Dosage: 20 MG, QD
     Route: 048
     Dates: start: 20090518
  4. NEXIUM [Concomitant]
     Dosage: 40 MG, QD
     Route: 048
     Dates: start: 20090519
  5. PHENERGAN ^AVENTIS PHARMA^ [Concomitant]
     Dosage: 25 MG, PRN
     Route: 048
     Dates: start: 20090601

REACTIONS (1)
  - MALIGNANT NEOPLASM PROGRESSION [None]
